FAERS Safety Report 20097305 (Version 1)
Quarter: 2021Q4

REPORT INFORMATION
  Report Type: Spontaneous
  Country: CN (occurrence: CN)
  Receive Date: 20211122
  Receipt Date: 20211122
  Transmission Date: 20220303
  Serious: Yes (Other)
  Sender: FDA-Public Use
  Company Number: CN-SA-SAC20211118001522

PATIENT
  Age: 56 Year
  Sex: Female
  Weight: 56 kg

DRUGS (2)
  1. GLIMEPIRIDE [Suspect]
     Active Substance: GLIMEPIRIDE
     Indication: Blood glucose decreased
     Dosage: 2 MG, QD
     Route: 048
     Dates: start: 20161001, end: 20211008
  2. ACARBOSE [Suspect]
     Active Substance: ACARBOSE
     Indication: Blood glucose decreased
     Dosage: 50 MG, QD
     Route: 048
     Dates: start: 20161001, end: 20211008

REACTIONS (2)
  - Aspartate aminotransferase increased [Recovered/Resolved]
  - Alanine aminotransferase increased [Recovered/Resolved]

NARRATIVE: CASE EVENT DATE: 20211008
